FAERS Safety Report 10101438 (Version 2)
Quarter: 2014Q2

REPORT INFORMATION
  Report Type: Spontaneous
  Country: US (occurrence: US)
  Receive Date: 20140424
  Receipt Date: 20140527
  Transmission Date: 20141212
  Serious: No
  Sender: FDA-Public Use
  Company Number: US-BAYER-2014-057723

PATIENT
  Age: 34 Year
  Sex: Female

DRUGS (1)
  1. CLIMARA [Suspect]
     Dosage: 50 MCG/24HR, OW
     Route: 062

REACTIONS (2)
  - Hot flush [Not Recovered/Not Resolved]
  - Drug ineffective [Not Recovered/Not Resolved]
